FAERS Safety Report 20325850 (Version 1)
Quarter: 2022Q1

REPORT INFORMATION
  Report Type: Spontaneous
  Country: US (occurrence: US)
  Receive Date: 20220112
  Receipt Date: 20220112
  Transmission Date: 20220424
  Serious: No
  Sender: FDA-Public Use
  Company Number: US-AUROBINDO-AUR-APL-2020-060854

PATIENT

DRUGS (1)
  1. DEXTROAMPHET SACCHARAT, AMPHET ASPARTATE, DEXTROAMPHET SULFATE AND AMP [Suspect]
     Active Substance: AMPHETAMINE ASPARTATE\AMPHETAMINE SULFATE\DEXTROAMPHETAMINE SACCHARATE\DEXTROAMPHETAMINE SULFATE
     Indication: Attention deficit hyperactivity disorder
     Dosage: UNK, TWO TIMES A DAY
     Route: 065

REACTIONS (14)
  - Vasoconstriction [Unknown]
  - Headache [Unknown]
  - Hyperhidrosis [Unknown]
  - Agitation [Unknown]
  - Frustration tolerance decreased [Unknown]
  - Crying [Unknown]
  - Mood swings [Unknown]
  - Cardiovascular disorder [Unknown]
  - Anxiety [Unknown]
  - Mania [Unknown]
  - Vomiting [Unknown]
  - Feeling abnormal [Unknown]
  - Product substitution issue [Unknown]
  - Drug ineffective [Unknown]
